FAERS Safety Report 13109872 (Version 1)
Quarter: 2017Q1

REPORT INFORMATION
  Report Type: Spontaneous
  Country: US (occurrence: US)
  Receive Date: 20170112
  Receipt Date: 20170112
  Transmission Date: 20170428
  Serious: Yes (Other)
  Sender: FDA-Public Use
  Company Number: US-ROCHE-1100920

PATIENT
  Age: 59 Year
  Sex: Male

DRUGS (6)
  1. TRIDIL [Concomitant]
     Active Substance: NITROGLYCERIN
     Route: 065
  2. HEPARIN [Concomitant]
     Active Substance: HEPARIN SODIUM
  3. TRIDIL [Concomitant]
     Active Substance: NITROGLYCERIN
     Route: 065
  4. ACTIVASE [Suspect]
     Active Substance: ALTEPLASE
     Indication: ACUTE MYOCARDIAL INFARCTION
     Route: 042
  5. MORPHINE [Concomitant]
     Active Substance: MORPHINE
     Route: 065
  6. TRIDIL [Concomitant]
     Active Substance: NITROGLYCERIN
     Route: 065

REACTIONS (3)
  - Ventricular extrasystoles [Unknown]
  - Hypotension [Unknown]
  - Reperfusion arrhythmia [Unknown]
